FAERS Safety Report 22249785 (Version 1)
Quarter: 2023Q2

REPORT INFORMATION
  Report Type: Spontaneous
  Country: US (occurrence: US)
  Receive Date: 20230425
  Receipt Date: 20230425
  Transmission Date: 20230722
  Serious: Yes (Other)
  Sender: FDA-Public Use
  Company Number: US-JNJFOC-20230442129

PATIENT

DRUGS (2)
  1. TECLISTAMAB [Suspect]
     Active Substance: TECLISTAMAB
     Indication: Plasma cell myeloma
     Dosage: INITIAL STEP UP DOSE 1 AND DOSE 2 WAS DELAYED.
     Route: 065
     Dates: start: 20230414
  2. CEFEPIME [Suspect]
     Active Substance: CEFEPIME HYDROCHLORIDE
     Indication: Bacteraemia
     Route: 065

REACTIONS (3)
  - Cytokine release syndrome [Unknown]
  - Bacteraemia [Unknown]
  - Swollen tongue [Unknown]

NARRATIVE: CASE EVENT DATE: 20230401
